FAERS Safety Report 10067853 (Version 1)
Quarter: 2014Q2

REPORT INFORMATION
  Report Type: Spontaneous
  Country: US (occurrence: US)
  Receive Date: 20140409
  Receipt Date: 20140409
  Transmission Date: 20141212
  Serious: No
  Sender: FDA-Public Use
  Company Number: US-TEVA-474412USA

PATIENT
  Age: 19 Year
  Sex: Female
  Weight: 56.75 kg

DRUGS (3)
  1. PLAN B ONE-STEP [Suspect]
     Indication: POST COITAL CONTRACEPTION
     Dosage: 1.5 MILLIGRAM DAILY;
     Route: 048
     Dates: start: 20140217, end: 20140217
  2. ADDERALL [Suspect]
     Indication: ATTENTION DEFICIT/HYPERACTIVITY DISORDER
  3. XANAX [Concomitant]
     Indication: DEPRESSION

REACTIONS (2)
  - Abdominal distension [Not Recovered/Not Resolved]
  - Menstruation irregular [Not Recovered/Not Resolved]
